FAERS Safety Report 4865502-2 (Version None)
Quarter: 2005Q4

REPORT INFORMATION
  Report Type: 
  Country: None (occurrence: None)
  Receive Date: 20051223
  Receipt Date: 20041123
  Transmission Date: 20060501
  Serious: Yes (Hospitalization, Disabling)
  Sender: FDA-Public Use
  Company Number: US-ROCHE-387326

PATIENT
  Age: 16 Year
  Sex: Male
  Weight: 61.2 kg

DRUGS (8)
  1. ACCUTANE [Suspect]
     Route: 048
     Dates: start: 20010828, end: 20011201
  2. AMOXICILLIN [Concomitant]
     Route: 048
     Dates: start: 20010828, end: 20011107
  3. PREDNISOLONE [Concomitant]
     Dosage: 28 AUG2001 TO 11SEP2001: 40MG QAM AND 30MG QPM 11SEP2001 - UNK: 30MG QAM AND 20MG QPM 10 OCT 2001 T+
     Route: 048
     Dates: start: 20010828, end: 20030514
  4. ADVIL [Concomitant]
     Indication: RHINITIS
     Route: 048
     Dates: start: 20010911
  5. ASACOL [Concomitant]
  6. BACTRIM DS [Concomitant]
     Dates: start: 20011107
  7. LORATADINE [Concomitant]
     Indication: RHINITIS
     Dates: start: 20010911
  8. ALEVE [Concomitant]
     Indication: HEADACHE
     Dates: start: 20011010

REACTIONS (26)
  - ACOUSTIC NEUROMA [None]
  - ANXIETY [None]
  - CHEST PAIN [None]
  - CHOLELITHIASIS [None]
  - COLITIS [None]
  - COLITIS ULCERATIVE [None]
  - CROHN'S DISEASE [None]
  - DEPRESSION [None]
  - DYSPNOEA [None]
  - FAECAL INCONTINENCE [None]
  - GASTROINTESTINAL DISORDER [None]
  - HEADACHE [None]
  - HEPATIC ENZYME INCREASED [None]
  - HERNIA [None]
  - HYPERSENSITIVITY [None]
  - INFLAMMATORY BOWEL DISEASE [None]
  - INTESTINAL HAEMORRHAGE [None]
  - JOINT SWELLING [None]
  - LIP DRY [None]
  - MENINGIOMA [None]
  - MIGRAINE [None]
  - MULTI-ORGAN DISORDER [None]
  - NEURILEMMOMA [None]
  - RECTAL HAEMORRHAGE [None]
  - SCAR [None]
  - VESTIBULAR DISORDER [None]
